FAERS Safety Report 6858252-4 (Version None)
Quarter: 2010Q3

REPORT INFORMATION
  Report Type: 
  Country: None (occurrence: None)
  Receive Date: 20100719
  Receipt Date: 20080212
  Transmission Date: 20110219
  Serious: No
  Sender: FDA-Public Use
  Company Number: US-PFIZER INC-2008012465

PATIENT
  Sex: Female
  Weight: 63.636 kg

DRUGS (11)
  1. CHANTIX [Suspect]
     Indication: SMOKING CESSATION THERAPY
     Dates: start: 20080101
  2. MONTELUKAST SODIUM [Concomitant]
     Indication: HYPERSENSITIVITY
  3. PREVACID [Concomitant]
  4. VENLAFAXINE HYDROCHLORIDE [Concomitant]
  5. LISINOPRIL [Concomitant]
  6. ISRADIPINE [Concomitant]
  7. VYTORIN [Concomitant]
  8. ADVAIR DISKUS 100/50 [Concomitant]
  9. ALBUTEROL [Concomitant]
  10. DILANTIN [Concomitant]
  11. DRUG, UNSPECIFIED [Concomitant]

REACTIONS (4)
  - FATIGUE [None]
  - FLATULENCE [None]
  - HYPERSOMNIA [None]
  - PRODUCT QUALITY ISSUE [None]
